FAERS Safety Report 4907764-9 (Version None)
Quarter: 2006Q1

REPORT INFORMATION
  Report Type: 
  Country: None (occurrence: None)
  Receive Date: 20060208
  Receipt Date: 20060208
  Transmission Date: 20060701
  Serious: Yes (Hospitalization)
  Sender: FDA-Public Use
  Company Number: None

PATIENT
  Age: 68 Year
  Sex: Male

DRUGS (7)
  1. FUROSEMIDE [Suspect]
     Indication: FLUID OVERLOAD
     Dosage: 40MG BID
     Dates: start: 20030901
  2. FUROSEMIDE [Suspect]
     Indication: HYPERTENSION
     Dosage: 40MG BID
     Dates: start: 20030901
  3. METOPROLOL [Concomitant]
  4. OMEPRAZOLE [Concomitant]
  5. SIMVASTATIN [Concomitant]
  6. SERTRALINE [Concomitant]
  7. ASPIRIN [Concomitant]

REACTIONS (1)
  - RENAL FAILURE ACUTE [None]
